FAERS Safety Report 18333062 (Version 13)
Quarter: 2022Q4

REPORT INFORMATION
  Report Type: Report from Study
  Country: CN (occurrence: None)
  Receive Date: 20200930
  Receipt Date: 20221026
  Transmission Date: 20230112
  Serious: Yes (Hospitalization)
  Sender: FDA-Public Use
  Company Number: CN-ROCHE-2665079

PATIENT
  Age: 61 Year
  Sex: Female
  Weight: 49 kg

DRUGS (35)
  1. ATEZOLIZUMAB [Suspect]
     Active Substance: ATEZOLIZUMAB
     Indication: Non-small cell lung cancer stage IV
     Dosage: START DATE OF MOST RECENT DOSE OF BLINDED ATEZOLIZUMAB PRIOR TO AE ONSET: 07-AUG-2020?START DATE OF
     Route: 041
     Dates: start: 20200806
  2. BEVACIZUMAB [Suspect]
     Active Substance: BEVACIZUMAB
     Indication: Non-small cell lung cancer stage IV
     Dosage: DATE OF MOST RECENT DOSE OF BEVACIZUMAB PRIOR TO AE ONSET 31/AUG/2020 (765 MG)
     Route: 042
     Dates: start: 20200806
  3. CARBOPLATIN [Suspect]
     Active Substance: CARBOPLATIN
     Indication: Non-small cell lung cancer stage IV
     Dosage: ACHIEVE AN INITIAL TARGET AUC OF 6 MG/ML/MIN.?DATE OF MOST RECENT DOSE OF CARBOPLATIN PRIOR TO AE ON
     Route: 042
     Dates: start: 20200807
  4. PEMETREXED [Suspect]
     Active Substance: PEMETREXED
     Indication: Non-small cell lung cancer stage IV
     Dosage: DATE OF MOST RECENT DOSE (725 MG) OF PEMETREXED PRIOR TO AE ONSET 07/AUG/2020.?DATE OF MOST RECENT D
     Route: 042
     Dates: start: 20200807
  5. TIOPRONIN [Concomitant]
     Active Substance: TIOPRONIN
     Indication: Hepatic enzyme increased
     Dates: start: 20200806, end: 20200810
  6. TIOPRONIN [Concomitant]
     Active Substance: TIOPRONIN
     Dates: start: 20200831, end: 20200902
  7. OXYCODONE HYDROCHLORIDE [Concomitant]
     Active Substance: OXYCODONE HYDROCHLORIDE
     Indication: Pain
     Dates: start: 20200615, end: 20200909
  8. OMEPRAZOLE [Concomitant]
     Active Substance: OMEPRAZOLE
     Dates: start: 20200806, end: 20200810
  9. OMEPRAZOLE [Concomitant]
     Active Substance: OMEPRAZOLE
     Dates: start: 20200831, end: 20200906
  10. PALONOSETRON HYDROCHLORIDE [Concomitant]
     Active Substance: PALONOSETRON HYDROCHLORIDE
     Dates: start: 20200807, end: 20200807
  11. PALONOSETRON HYDROCHLORIDE [Concomitant]
     Active Substance: PALONOSETRON HYDROCHLORIDE
     Dates: start: 20200901, end: 20200901
  12. PHOSPHOLIPID [Concomitant]
     Active Substance: PHOSPHOLIPID
     Indication: Hepatic enzyme increased
     Dates: start: 20200803, end: 20200824
  13. PHOSPHOLIPID [Concomitant]
     Active Substance: PHOSPHOLIPID
     Dates: start: 20200831, end: 20200912
  14. MAGNESIUM ISOGLYCYRRHIZINATE [Concomitant]
     Active Substance: MAGNESIUM ISOGLYCYRRHIZINATE
     Indication: Hepatic enzyme increased
     Dates: start: 20200806, end: 20200810
  15. DEXAMETHASONE ACETATE [Concomitant]
     Active Substance: DEXAMETHASONE ACETATE
     Route: 048
     Dates: start: 20200806, end: 20200808
  16. DEXAMETHASONE ACETATE [Concomitant]
     Active Substance: DEXAMETHASONE ACETATE
     Route: 048
     Dates: start: 20200831, end: 20200902
  17. ONDANSETRON HYDROCHLORIDE [Concomitant]
     Active Substance: ONDANSETRON HYDROCHLORIDE
     Indication: Nausea
     Dates: start: 20200810, end: 20200811
  18. ONDANSETRON HYDROCHLORIDE [Concomitant]
     Active Substance: ONDANSETRON HYDROCHLORIDE
     Dates: start: 20200831, end: 20200906
  19. HERBALS\DIAMMONIUM GLYCYRRHIZINATE [Concomitant]
     Active Substance: HERBALS\DIAMMONIUM GLYCYRRHIZINATE
     Indication: Hepatic enzyme increased
     Dates: start: 20200803, end: 20200824
  20. BICYCLOL [Concomitant]
     Active Substance: BICYCLOL
     Indication: Hepatic enzyme increased
     Dates: start: 20200803, end: 20200814
  21. CODEINE PHOSPHATE;DICLOFENAC SODIUM [Concomitant]
     Indication: Pain
     Dates: start: 20200611, end: 20200803
  22. MOLGRAMOSTIM [Concomitant]
     Active Substance: MOLGRAMOSTIM
     Dates: start: 20200820, end: 20200822
  23. MOLGRAMOSTIM [Concomitant]
     Active Substance: MOLGRAMOSTIM
     Dates: start: 20200824, end: 20200825
  24. SANGUISORBA [Concomitant]
     Dates: start: 20200903, end: 20200911
  25. SANGUISORBA [Concomitant]
     Dates: start: 20200902, end: 20200911
  26. VITAMIN C [Concomitant]
     Active Substance: ASCORBIC ACID
     Dates: start: 20200927, end: 20201005
  27. VITAMIN C [Concomitant]
     Active Substance: ASCORBIC ACID
     Dates: start: 20200922, end: 20201004
  28. COMPOUND GLYCYRRHIZA ORAL SOLUTION [Concomitant]
     Indication: Cough
     Dates: start: 20200922, end: 20201005
  29. DIOXOPROMETHAZINE HYDROCHLORIDE [Concomitant]
     Active Substance: DIOXOPROMETHAZINE HYDROCHLORIDE
     Indication: Cough
     Dates: start: 20200928, end: 20201005
  30. DEXAMETHASONE SODIUM PHOSPHATE [Concomitant]
     Active Substance: DEXAMETHASONE SODIUM PHOSPHATE
     Indication: Nausea
     Dates: start: 20200927, end: 20201005
  31. DEXAMETHASONE SODIUM PHOSPHATE [Concomitant]
     Active Substance: DEXAMETHASONE SODIUM PHOSPHATE
     Dates: start: 20200930, end: 20200930
  32. INSULIN NOS [Concomitant]
     Active Substance: INSULIN NOS
     Dates: start: 20200922, end: 20200922
  33. VITAMIN B12 [Concomitant]
     Active Substance: CYANOCOBALAMIN
     Indication: Chemotherapy
     Dates: start: 20200806, end: 20200806
  34. VITAMIN B12 [Concomitant]
     Active Substance: CYANOCOBALAMIN
     Indication: Anaemia
     Dates: start: 20200930, end: 20200930
  35. VITAMIN B12 [Concomitant]
     Active Substance: CYANOCOBALAMIN
     Dates: start: 20200922, end: 20200922

REACTIONS (2)
  - Thrombocytopenia [Recovered/Resolved]
  - Anaemia [Recovered/Resolved]

NARRATIVE: CASE EVENT DATE: 20200817
